FAERS Safety Report 26061981 (Version 1)
Quarter: 2025Q4

REPORT INFORMATION
  Report Type: Spontaneous
  Country: US (occurrence: US)
  Receive Date: 20251119
  Receipt Date: 20251119
  Transmission Date: 20260118
  Serious: No
  Sender: ALEXION PHARMACEUTICALS
  Company Number: US-AstraZeneca-CH-00991879A

PATIENT
  Age: 72 Year
  Sex: Female

DRUGS (2)
  1. TEZSPIRE [Suspect]
     Active Substance: TEZEPELUMAB-EKKO
     Route: 065
  2. TEZSPIRE [Suspect]
     Active Substance: TEZEPELUMAB-EKKO

REACTIONS (5)
  - Illness [Unknown]
  - Dyspnoea [Unknown]
  - Bacterial infection [Unknown]
  - Asthma [Unknown]
  - Immune system disorder [Unknown]

NARRATIVE: CASE EVENT DATE: 20250625
